FAERS Safety Report 9470330 (Version 1)
Quarter: 2013Q3

REPORT INFORMATION
  Report Type: Spontaneous
  Country: US (occurrence: US)
  Receive Date: 20130822
  Receipt Date: 20130822
  Transmission Date: 20140515
  Serious: No
  Sender: FDA-Public Use
  Company Number: US-SANOFI-AVENTIS-2012SA085272

PATIENT
  Age: 75 Year
  Sex: Female
  Weight: 63.63 kg

DRUGS (9)
  1. MULTAQ [Suspect]
     Indication: ATRIAL FIBRILLATION
     Route: 048
     Dates: start: 2011, end: 201211
  2. MULTAQ [Suspect]
     Indication: ATRIAL FIBRILLATION
     Route: 048
     Dates: start: 2012
  3. THYROID [Concomitant]
  4. ACETAMINOPHEN [Concomitant]
     Indication: ARTHRITIS
  5. TRAMADOL [Concomitant]
     Indication: ARTHRITIS
  6. EVISTA [Concomitant]
     Indication: OSTEOPOROSIS
     Dates: start: 2009
  7. WARFARIN [Concomitant]
     Indication: ATRIAL FIBRILLATION
     Dates: start: 2010
  8. PLAQUENIL [Concomitant]
     Indication: ARTHRITIS
     Dates: start: 201110
  9. PLAQUENIL [Concomitant]
     Indication: INFLAMMATION
     Dates: start: 201110

REACTIONS (1)
  - Hot flush [Not Recovered/Not Resolved]
